FAERS Safety Report 12365915 (Version 4)
Quarter: 2016Q2

REPORT INFORMATION
  Report Type: Spontaneous
  Country: US (occurrence: US)
  Receive Date: 20160513
  Receipt Date: 20160603
  Transmission Date: 20160815
  Serious: Yes (Other)
  Sender: FDA-Public Use
  Company Number: US-GLAXOSMITHKLINE-US2016066008

PATIENT
  Sex: Male

DRUGS (7)
  1. VOLTAREN [Suspect]
     Active Substance: DICLOFENAC SODIUM
     Indication: PAIN IN EXTREMITY
  2. VOLTAREN [Suspect]
     Active Substance: DICLOFENAC SODIUM
     Indication: ARTHRALGIA
     Dosage: UNK
     Dates: start: 2010
  3. VOLTAREN [Suspect]
     Active Substance: DICLOFENAC SODIUM
     Indication: LACERATION
  4. VOLTAREN [Suspect]
     Active Substance: DICLOFENAC SODIUM
     Indication: CONTUSION
  5. VOLTAREN [Suspect]
     Active Substance: DICLOFENAC SODIUM
     Indication: SKIN ABRASION
  6. VOLTAREN [Suspect]
     Active Substance: DICLOFENAC SODIUM
     Indication: LACERATION
  7. VOLTAREN [Suspect]
     Active Substance: DICLOFENAC SODIUM
     Indication: NEURALGIA

REACTIONS (5)
  - Drug administered at inappropriate site [Unknown]
  - Spinal column stenosis [Unknown]
  - Wrong technique in product usage process [Unknown]
  - Product use issue [Unknown]
  - Drug prescribing error [Unknown]

NARRATIVE: CASE EVENT DATE: 2013
